FAERS Safety Report 23776765 (Version 3)
Quarter: 2024Q2

REPORT INFORMATION
  Report Type: Spontaneous
  Country: FR (occurrence: FR)
  Receive Date: 20240424
  Receipt Date: 20240523
  Transmission Date: 20240716
  Serious: Yes (Other)
  Sender: FDA-Public Use
  Company Number: None

PATIENT
  Age: 81 Year
  Sex: Female
  Weight: 73 kg

DRUGS (22)
  1. STELARA [Suspect]
     Active Substance: USTEKINUMAB
     Indication: Psoriatic arthropathy
     Dosage: 45 MG ON D0, THEN ON W4, THEN EVERY 12 WEEKS.
     Route: 058
     Dates: start: 20220915
  2. METHOTREXATE SODIUM [Suspect]
     Active Substance: METHOTREXATE SODIUM
     Indication: Psoriatic arthropathy
     Dosage: 1 INJECTION PER WEEK ON THURSDAY
     Route: 058
     Dates: start: 2001
  3. FOLIC ACID [Concomitant]
     Active Substance: FOLIC ACID
     Dosage: 1 PER DAY EXCEPT THURSDAY
  4. INSULIN DETEMIR [Concomitant]
     Active Substance: INSULIN DETEMIR
     Dosage: 6 IU IN THE EVENING
  5. DULAGLUTIDE [Concomitant]
     Active Substance: DULAGLUTIDE
     Dosage: 1.5 MG SC 1 IND/WEEK
  6. NOVORAPID [Concomitant]
     Active Substance: INSULIN ASPART
     Dosage: 6 IU IN THE MORNING
  7. METFORMIN [Concomitant]
     Active Substance: METFORMIN HYDROCHLORIDE
     Dosage: 1000 X 2/D
  8. GLYBURIDE [Concomitant]
     Active Substance: GLYBURIDE
     Dosage: 5 MG X 3/J
  9. METOPROLOL [Concomitant]
     Active Substance: METOPROLOL
     Dosage: 100 MG X 1/J
  10. HYDROCHLOROTHIAZIDE\IRBESARTAN [Concomitant]
     Active Substance: HYDROCHLOROTHIAZIDE\IRBESARTAN
     Dosage: 150 MG/12,5 MG X 1/J
  11. FLECAINIDE [Concomitant]
     Active Substance: FLECAINIDE
     Dosage: 150 MG X 1/D
  12. PRAVASTATIN [Concomitant]
     Active Substance: PRAVASTATIN
     Dosage: 20 MG X 1/J
  13. KARDEGIC [Concomitant]
     Active Substance: ASPIRIN DL-LYSINE
     Dosage: 75 MG SACHET X 1/J
  14. ESOMEPRAZOLE [Concomitant]
     Active Substance: ESOMEPRAZOLE
     Dosage: 40 MG X 1/J
  15. ACETAMINOPHEN [Concomitant]
     Active Substance: ACETAMINOPHEN
     Dosage: 1 GX 3/D
  16. TRAMADOL HYDROCHLORIDE [Concomitant]
     Active Substance: TRAMADOL HYDROCHLORIDE
     Dosage: 150 MG X 2/J
  17. NIFLUMIC ACID [Concomitant]
     Active Substance: NIFLUMIC ACID
     Dosage: APPLICATION MORNING AND EVENING
  18. AMITRIPTYLINE HYDROCHLORIDE [Concomitant]
     Active Substance: AMITRIPTYLINE HYDROCHLORIDE
  19. LYRICA [Concomitant]
     Active Substance: PREGABALIN
     Dosage: 100 MG X 2/J + 25 MG X 2/J
  20. ACUPAN [Concomitant]
     Active Substance: NEFOPAM HYDROCHLORIDE
     Dosage: 1 AMPOULE X 3/J
  21. CALCIUM CARBONATE [Concomitant]
     Active Substance: CALCIUM CARBONATE
     Dosage: CALCIDOSE SACHET X 2/J
  22. DOMPERIDONE [Concomitant]
     Active Substance: DOMPERIDONE
     Dosage: 10 MG X 3/J

REACTIONS (1)
  - Bowen^s disease [Recovered/Resolved]

NARRATIVE: CASE EVENT DATE: 20240207
